FAERS Safety Report 7543709-3 (Version None)
Quarter: 2011Q2

REPORT INFORMATION
  Report Type: 
  Country: None (occurrence: None)
  Receive Date: 20110613
  Receipt Date: 20030910
  Transmission Date: 20111010
  Serious: Yes (Death, Other)
  Sender: FDA-Public Use
  Company Number: PHFR2003IE00569

PATIENT
  Sex: Female

DRUGS (6)
  1. VALPROATE SODIUM [Concomitant]
     Route: 048
  2. CLOZAPINE [Suspect]
     Indication: SCHIZOPHRENIA
     Route: 048
     Dates: start: 20010613
  3. RISPERIDONE [Concomitant]
     Dosage: 2 MG, QD
     Route: 065
  4. ALBUTEROL [Concomitant]
     Dosage: 2.5 MG, BID
     Route: 065
  5. CLONAZEPAM [Concomitant]
     Dosage: .5 MG, TID
     Route: 065
  6. ADALAT [Concomitant]
     Dosage: 30MG/DAY
     Route: 065

REACTIONS (4)
  - LOWER RESPIRATORY TRACT INFECTION [None]
  - DEATH [None]
  - CYANOSIS [None]
  - DYSPNOEA [None]
